FAERS Safety Report 5195162-5 (Version None)
Quarter: 2006Q4

REPORT INFORMATION
  Report Type: 
  Country: None (occurrence: None)
  Receive Date: 20061229
  Receipt Date: 20061120
  Transmission Date: 20070319
  Serious: Yes (Life-Threatening)
  Sender: FDA-Public Use
  Company Number: DE-BOEHRINGER INGELHEIM GMBH, GERMANY-2006-DE-06156DE

PATIENT
  Sex: Male

DRUGS (1)
  1. SIFROL [Suspect]

REACTIONS (1)
  - MYOCARDIAL INFARCTION [None]
